FAERS Safety Report 6265061-6 (Version None)
Quarter: 2009Q3

REPORT INFORMATION
  Report Type: 
  Country: None (occurrence: None)
  Receive Date: 20090713
  Receipt Date: 20090630
  Transmission Date: 20100115
  Serious: Yes (Disabling)
  Sender: FDA-Public Use
  Company Number: GB-PFIZER INC-2009233910

PATIENT
  Age: 31 Year

DRUGS (3)
  1. GABAPENTIN [Suspect]
     Indication: MIGRAINE WITH AURA
     Dosage: 1800 MG, UNK
     Route: 048
     Dates: start: 20080601, end: 20090101
  2. CITALOPRAM [Concomitant]
     Indication: DEPRESSION
     Dosage: 20 MG, UNK
     Route: 048
     Dates: start: 20070101
  3. LEVOTHYROXINE [Concomitant]
     Indication: HYPOTHYROIDISM
     Dosage: 150 UG, UNK
     Route: 048
     Dates: start: 19990101

REACTIONS (4)
  - FACIAL SPASM [None]
  - MYOCLONUS [None]
  - SUICIDAL IDEATION [None]
  - THINKING ABNORMAL [None]
